FAERS Safety Report 11752787 (Version 1)
Quarter: 2015Q4

REPORT INFORMATION
  Report Type: Spontaneous
  Country: US (occurrence: US)
  Receive Date: 20151119
  Receipt Date: 20151119
  Transmission Date: 20160304
  Serious: Yes (Other)
  Sender: FDA-Public Use
  Company Number: US-TEVA-610314ACC

PATIENT
  Sex: Female

DRUGS (1)
  1. PLAN B ONE-STEP [Suspect]
     Active Substance: LEVONORGESTREL
     Indication: POST COITAL CONTRACEPTION
     Dates: start: 20151008, end: 20151008

REACTIONS (2)
  - Pregnancy after post coital contraception [Unknown]
  - Human chorionic gonadotropin [Not Recovered/Not Resolved]

NARRATIVE: CASE EVENT DATE: 20151112
